FAERS Safety Report 13449950 (Version 1)
Quarter: 2017Q2

REPORT INFORMATION
  Report Type: Spontaneous
  Country: US (occurrence: US)
  Receive Date: 20170417
  Receipt Date: 20170417
  Transmission Date: 20170830
  Serious: No
  Sender: FDA-Public Use
  Company Number: US-BION-20160337

PATIENT
  Age: 85 Year
  Sex: Female
  Weight: 68.04 kg

DRUGS (3)
  1. HUMALOG [Concomitant]
     Active Substance: INSULIN LISPRO
  2. ALEVE [Suspect]
     Active Substance: NAPROXEN SODIUM
     Indication: DIABETIC NEUROPATHY
     Route: 048
  3. CLARITIN [Concomitant]
     Active Substance: LORATADINE
     Dosage: 1 DF USED ONLY ONCE

REACTIONS (2)
  - Somnolence [Recovered/Resolved]
  - Product use in unapproved indication [Unknown]

NARRATIVE: CASE EVENT DATE: 20160725
